FAERS Safety Report 6335855-7 (Version None)
Quarter: 2009Q3

REPORT INFORMATION
  Report Type: 
  Country: None (occurrence: None)
  Receive Date: 20090828
  Receipt Date: 20090812
  Transmission Date: 20100115
  Serious: Yes (Hospitalization)
  Sender: FDA-Public Use
  Company Number: 20090372

PATIENT
  Age: 64 Year
  Sex: Female

DRUGS (1)
  1. VENOFER [Suspect]
     Indication: ANAEMIA
     Dosage: 300 MG INTRAVENOUS, 20 MG/ML
     Route: 042
     Dates: start: 20090716, end: 20090716

REACTIONS (6)
  - ANAPHYLACTOID REACTION [None]
  - ARTHRALGIA [None]
  - CHEST PAIN [None]
  - FLANK PAIN [None]
  - INFUSION RELATED REACTION [None]
  - MUSCLE SPASMS [None]
